FAERS Safety Report 6804590-0 (Version None)
Quarter: 2010Q2

REPORT INFORMATION
  Report Type: 
  Country: None (occurrence: None)
  Receive Date: 20100628
  Receipt Date: 20070411
  Transmission Date: 20101027
  Serious: No
  Sender: FDA-Public Use
  Company Number: US-PFIZER INC-2007029347

PATIENT
  Sex: Female
  Weight: 56.7 kg

DRUGS (2)
  1. SOMAVERT [Suspect]
     Indication: PITUITARY TUMOUR
  2. SANDOSTATIN [Concomitant]

REACTIONS (4)
  - ALOPECIA [None]
  - DRY SKIN [None]
  - FATIGUE [None]
  - IRON DEFICIENCY ANAEMIA [None]
